FAERS Safety Report 5214693-2 (Version None)
Quarter: 2007Q1

REPORT INFORMATION
  Report Type: 
  Country: None (occurrence: None)
  Receive Date: 20061107
  Receipt Date: 20060811
  Transmission Date: 20070707
  Serious: No
  Sender: FDA-Public Use
  Company Number: 200615060BWH

PATIENT
  Age: 68 Year
  Sex: Male

DRUGS (3)
  1. LEVITRA [Suspect]
     Indication: ERECTILE DYSFUNCTION
     Dosage: 10 MG, ONCE, ORAL
     Route: 048
     Dates: start: 20060805
  2. MEDICATION FOR  HIGH BLOOD PRESSURE [Concomitant]
  3. MEDICATION FOR DIABETES [Concomitant]

REACTIONS (1)
  - ERECTILE DYSFUNCTION [None]
